FAERS Safety Report 6234219-4 (Version None)
Quarter: 2009Q2

REPORT INFORMATION
  Report Type: 
  Country: None (occurrence: None)
  Receive Date: 20090618
  Receipt Date: 20090611
  Transmission Date: 20091009
  Serious: Yes (Other)
  Sender: FDA-Public Use
  Company Number: JP-JNJFOC-20090604204

PATIENT
  Age: 55 Year
  Sex: Male

DRUGS (5)
  1. ITRIZOLE [Suspect]
     Route: 048
  2. ITRIZOLE [Suspect]
     Indication: ONYCHOMYCOSIS
     Route: 048
  3. CYCLOSPORINE [Interacting]
     Indication: DRUG USE FOR UNKNOWN INDICATION
     Route: 041
  4. TACROLIMUS [Suspect]
     Indication: DRUG USE FOR UNKNOWN INDICATION
     Route: 065
  5. AZATHIOPRINE [Suspect]
     Indication: DRUG USE FOR UNKNOWN INDICATION
     Route: 065

REACTIONS (5)
  - DRUG INTERACTION [None]
  - GLYCOSYLATED HAEMOGLOBIN INCREASED [None]
  - HERPES ZOSTER [None]
  - IMMUNOSUPPRESSANT DRUG LEVEL INCREASED [None]
  - LYMPHOCYTE COUNT DECREASED [None]
